FAERS Safety Report 9917210 (Version 1)
Quarter: 2014Q1

REPORT INFORMATION
  Report Type: Spontaneous
  Country: NO (occurrence: NO)
  Receive Date: 20140221
  Receipt Date: 20140221
  Transmission Date: 20141002
  Serious: Yes (Hospitalization, Other)
  Sender: FDA-Public Use
  Company Number: NO-PFIZER INC-2014047126

PATIENT
  Age: 14 Year
  Sex: Male

DRUGS (5)
  1. ZOLOFT [Suspect]
     Indication: DEPRESSION
     Dosage: 25 MG DAILY
     Route: 048
     Dates: start: 20131210
  2. ZOLOFT [Suspect]
     Dosage: 100 MG DAILY
     Route: 048
  3. ZOLOFT [Suspect]
     Dosage: 75 MG, DAILY
     Route: 048
     Dates: start: 2014, end: 2014
  4. ZOLOFT [Suspect]
     Dosage: 50 MG, DAILY
     Route: 048
     Dates: start: 2014, end: 20140202
  5. RISPERDAL [Concomitant]
     Dosage: 0.5 MG, 2X/DAY
     Dates: start: 2014

REACTIONS (16)
  - Hyperhidrosis [Recovering/Resolving]
  - Pyrexia [Recovering/Resolving]
  - Nystagmus [Recovering/Resolving]
  - Hallucination [Recovering/Resolving]
  - Depressive symptom [Recovering/Resolving]
  - Muscle rigidity [Recovering/Resolving]
  - Muscle spasms [Recovering/Resolving]
  - Delirium [Recovering/Resolving]
  - Dysarthria [Recovering/Resolving]
  - Restlessness [Recovering/Resolving]
  - Dyskinesia [Recovering/Resolving]
  - Depressed level of consciousness [Recovering/Resolving]
  - Serotonin syndrome [Recovering/Resolving]
  - Neuroleptic malignant syndrome [Recovering/Resolving]
  - Acute psychosis [Recovering/Resolving]
  - Sinus tachycardia [Recovering/Resolving]
